FAERS Safety Report 10801733 (Version 1)
Quarter: 2015Q1

REPORT INFORMATION
  Report Type: Spontaneous
  Country: US (occurrence: US)
  Receive Date: 20150217
  Receipt Date: 20150217
  Transmission Date: 20150721
  Serious: Yes (Hospitalization)
  Sender: FDA-Public Use
  Company Number: US-BAYER-2015-021932

PATIENT
  Age: 30 Year
  Sex: Female
  Weight: 69.39 kg

DRUGS (9)
  1. CEFPROZIL. [Concomitant]
     Active Substance: CEFPROZIL
     Indication: SINUSITIS
     Dosage: 500 MG, UNK
     Dates: start: 20080905
  2. ALLEGRA-D [FEXOFENADINE HYDROCHLORIDE,PSEUDOEPHEDRINE HYDROCHLORID [Concomitant]
     Dosage: UNK
     Dates: start: 20080911
  3. DUONEB [Concomitant]
     Active Substance: ALBUTEROL SULFATE\IPRATROPIUM BROMIDE
  4. CHERATUSSIN DAC [Concomitant]
     Active Substance: CODEINE PHOSPHATE\GUAIFENESIN\PSEUDOEPHEDRINE HYDROCHLORIDE
     Dosage: UNK
     Dates: start: 20080905
  5. CLAFORAN [Concomitant]
     Active Substance: CEFOTAXIME SODIUM
  6. ZITHROMAX [Concomitant]
     Active Substance: AZITHROMYCIN DIHYDRATE
     Indication: PNEUMONIA
  7. DURICEF [Concomitant]
     Active Substance: CEFADROXIL
  8. YASMIN [Suspect]
     Active Substance: DROSPIRENONE\ETHINYL ESTRADIOL
  9. AVELOX [Concomitant]
     Active Substance: MOXIFLOXACIN HYDROCHLORIDE

REACTIONS (1)
  - Pulmonary embolism [Recovered/Resolved]

NARRATIVE: CASE EVENT DATE: 20080906
